FAERS Safety Report 8125871-7 (Version None)
Quarter: 2012Q1

REPORT INFORMATION
  Report Type: 
  Country: None (occurrence: None)
  Receive Date: 20120206
  Receipt Date: 20120120
  Transmission Date: 20120608
  Serious: Yes (Other)
  Sender: FDA-Public Use
  Company Number: DEP_00557_2012

PATIENT
  Age: 50 Year
  Sex: Female

DRUGS (6)
  1. ABILIFY [Concomitant]
  2. CELEXA [Concomitant]
  3. GRALISE [Suspect]
     Indication: NEURALGIA
     Dosage: (600 MG, TITRATION, 600 MG ORAL)
     Route: 048
     Dates: start: 20120111, end: 20120115
  4. TRAZODONE HYDROCHLORIDE [Concomitant]
  5. METHADONE HCL [Concomitant]
  6. FLEXERIL [Concomitant]

REACTIONS (1)
  - LOSS OF CONSCIOUSNESS [None]
